FAERS Safety Report 7828787-6 (Version None)
Quarter: 2011Q4

REPORT INFORMATION
  Report Type: 
  Country: None (occurrence: None)
  Receive Date: 20111020
  Receipt Date: 20111004
  Transmission Date: 20120403
  Serious: No
  Sender: FDA-Public Use
  Company Number: US-B.I. PHARMACEUTICALS,INC./RIDGEFIELD-2011-BP-21821BP

PATIENT
  Age: 29 Year
  Sex: Male

DRUGS (4)
  1. VIRAMUNE [Suspect]
     Dates: end: 20110815
  2. EPZICOM [Concomitant]
  3. LORAZEPAM [Concomitant]
  4. PROTONIX [Concomitant]

REACTIONS (1)
  - MEDICATION RESIDUE [None]
